FAERS Safety Report 10564076 (Version 1)
Quarter: 2014Q4

REPORT INFORMATION
  Report Type: Spontaneous
  Country: US (occurrence: US)
  Receive Date: 20141104
  Receipt Date: 20141104
  Transmission Date: 20150529
  Serious: Yes (Other)
  Sender: FDA-Public Use
  Company Number: US-ROXANE LABORATORIES, INC.-2014-RO-01662RO

PATIENT
  Age: 13 Year
  Sex: Male
  Weight: 80 kg

DRUGS (1)
  1. RISPERIDONE. [Suspect]
     Active Substance: RISPERIDONE
     Indication: AGGRESSION
     Dosage: 3 MG
     Route: 065

REACTIONS (2)
  - Hypersexuality [Unknown]
  - Akathisia [Unknown]
